FAERS Safety Report 19680500 (Version 2)
Quarter: 2021Q3

REPORT INFORMATION
  Report Type: Spontaneous
  Country: NL (occurrence: NL)
  Receive Date: 20210810
  Receipt Date: 20210909
  Transmission Date: 20211014
  Serious: Yes (Other)
  Sender: FDA-Public Use
  Company Number: NL-LUPIN PHARMACEUTICALS INC.-2021-14320

PATIENT
  Age: 75 Year
  Sex: Male

DRUGS (10)
  1. CLOZAPINE. [Concomitant]
     Active Substance: CLOZAPINE
     Indication: BEHAVIOUR DISORDER
     Dosage: 12.5 MILLIGRAM, QD
     Route: 065
  2. LORAZEPAM. [Concomitant]
     Active Substance: LORAZEPAM
     Indication: BEHAVIOUR DISORDER
     Dosage: 2.5 MILLIGRAM
     Route: 065
  3. OXAZEPAM. [Concomitant]
     Active Substance: OXAZEPAM
     Indication: BEHAVIOUR DISORDER
     Dosage: 10 MILLIGRAM, TID
     Route: 065
  4. MIDAZOLAM. [Concomitant]
     Active Substance: MIDAZOLAM
     Indication: BEHAVIOUR DISORDER
     Dosage: 7.5 MILLIGRAM
     Route: 065
  5. CITALOPRAM [Concomitant]
     Active Substance: CITALOPRAM HYDROBROMIDE
     Indication: BEHAVIOUR DISORDER
     Dosage: 20 MILLIGRAM, QD
     Route: 065
  6. ALPRAZOLAM. [Concomitant]
     Active Substance: ALPRAZOLAM
     Indication: BEHAVIOUR DISORDER
     Dosage: 0.5 MILLIGRAM, TID
     Route: 065
  7. QUETIAPINE FUMARATE. [Suspect]
     Active Substance: QUETIAPINE FUMARATE
     Indication: BEHAVIOUR DISORDER
     Dosage: 50 MILLIGRAM, QD
     Route: 065
  8. CLOZAPINE. [Concomitant]
     Active Substance: CLOZAPINE
     Indication: DEMENTIA
     Dosage: 12.5 MILLIGRAM, BID
     Route: 065
  9. VALPROIC ACID. [Concomitant]
     Active Substance: VALPROIC ACID
     Indication: BEHAVIOUR DISORDER
     Dosage: 300 MILLIGRAM, BID
     Route: 065
  10. MIDAZOLAM. [Concomitant]
     Active Substance: MIDAZOLAM
     Indication: BEHAVIOUR DISORDER
     Dosage: UNK
     Route: 045

REACTIONS (1)
  - Drug ineffective [Unknown]
